FAERS Safety Report 14955205 (Version 1)
Quarter: 2018Q2

REPORT INFORMATION
  Report Type: Spontaneous
  Country: FR (occurrence: FR)
  Receive Date: 20180531
  Receipt Date: 20180531
  Transmission Date: 20180711
  Serious: Yes (Other)
  Sender: FDA-Public Use
  Company Number: FR-MERCK KGAA-2048729

PATIENT
  Age: 65 Year
  Sex: Female

DRUGS (1)
  1. NOVOTHYROX [Suspect]
     Active Substance: LEVOTHYROXINE SODIUM
     Indication: PRODUCT USED FOR UNKNOWN INDICATION

REACTIONS (39)
  - Irritability [Recovering/Resolving]
  - Fall [Recovering/Resolving]
  - Migraine [Recovering/Resolving]
  - Disorientation [Recovering/Resolving]
  - Judgement impaired [Recovering/Resolving]
  - Gingival abscess [Recovering/Resolving]
  - Anxiety [Recovering/Resolving]
  - Pain [Recovering/Resolving]
  - Fatigue [Recovering/Resolving]
  - Myalgia [Recovering/Resolving]
  - Asthenia [Recovering/Resolving]
  - Colitis [Recovering/Resolving]
  - Skin disorder [Recovering/Resolving]
  - Self-medication [Recovering/Resolving]
  - Circadian rhythm sleep disorder [Recovering/Resolving]
  - Muscle spasms [Recovering/Resolving]
  - Alopecia [Recovering/Resolving]
  - Depressed mood [Recovering/Resolving]
  - Renal colic [Recovering/Resolving]
  - Feeling abnormal [Recovering/Resolving]
  - Depression [Recovering/Resolving]
  - Decreased interest [Recovering/Resolving]
  - Tachycardia [Recovering/Resolving]
  - Vertigo [Recovering/Resolving]
  - Impatience [Recovering/Resolving]
  - Incontinence [Recovering/Resolving]
  - Skin exfoliation [Recovering/Resolving]
  - Nightmare [Recovering/Resolving]
  - Social avoidant behaviour [Recovering/Resolving]
  - Loss of personal independence in daily activities [Recovering/Resolving]
  - Nausea [Recovering/Resolving]
  - Tinnitus [Recovering/Resolving]
  - Enuresis [Recovering/Resolving]
  - Memory impairment [Recovering/Resolving]
  - Hypertension [Recovering/Resolving]
  - Arthralgia [Recovering/Resolving]
  - Disturbance in attention [Recovering/Resolving]
  - Insomnia [Recovering/Resolving]
  - Palpitations [Recovering/Resolving]

NARRATIVE: CASE EVENT DATE: 201705
